FAERS Safety Report 13926653 (Version 1)
Quarter: 2017Q3

REPORT INFORMATION
  Report Type: Spontaneous
  Country: US (occurrence: US)
  Receive Date: 20170901
  Receipt Date: 20170901
  Transmission Date: 20171127
  Serious: Yes (Other)
  Sender: FDA-Public Use
  Company Number: US-STRIDES ARCOLAB LIMITED-2017SP008879

PATIENT

DRUGS (3)
  1. METRONIDAZOLE. [Suspect]
     Active Substance: METRONIDAZOLE
     Indication: ABDOMINAL INFECTION
     Dosage: 500 MG, EVERY 8 HOURS INFUSION
     Route: 042
  2. CEFTAZIDIME. [Suspect]
     Active Substance: CEFTAZIDIME
     Indication: ABDOMINAL INFECTION
     Dosage: 2000 MG, EVERY 8 HOURS
     Route: 042
  3. AVIBACTAM [Suspect]
     Active Substance: AVIBACTAM
     Indication: ABDOMINAL INFECTION
     Dosage: 500 MG, EVERY 8 HOURS
     Route: 042

REACTIONS (1)
  - Treatment failure [Unknown]
